FAERS Safety Report 14058013 (Version 2)
Quarter: 2017Q4

REPORT INFORMATION
  Report Type: Spontaneous
  Country: US (occurrence: US)
  Receive Date: 20171006
  Receipt Date: 20171129
  Transmission Date: 20180321
  Serious: Yes (Other)
  Sender: FDA-Public Use
  Company Number: US-STANDARD HOMEOPATHIC COMPANY-2029117

PATIENT
  Age: 4 Year
  Sex: Female

DRUGS (2)
  1. 4 KIDS COMPLETE COLD AND MUCUS [Suspect]
     Active Substance: HOMEOPATHICS
     Route: 048
     Dates: start: 20170922, end: 20170924
  2. 4 KIDS COMPLETE COLD AND MUCUS [Suspect]
     Active Substance: HOMEOPATHICS
     Indication: NASOPHARYNGITIS
     Route: 048
     Dates: start: 20170922, end: 20170924

REACTIONS (2)
  - Haematemesis [None]
  - Haemoptysis [None]

NARRATIVE: CASE EVENT DATE: 20170924
